FAERS Safety Report 6682804-8 (Version None)
Quarter: 2010Q2

REPORT INFORMATION
  Report Type: 
  Country: None (occurrence: None)
  Receive Date: 20100415
  Receipt Date: 20100413
  Transmission Date: 20101027
  Serious: Yes (Death, Hospitalization)
  Sender: FDA-Public Use
  Company Number: FR-ROCHE-684536

PATIENT
  Sex: Male
  Weight: 84 kg

DRUGS (4)
  1. BEVACIZUMAB [Suspect]
     Indication: NON-SMALL CELL LUNG CANCER
     Dosage: PERMANENTLY DISCONTINUED.
     Route: 042
     Dates: start: 20091208, end: 20100208
  2. ERLOTINIB [Suspect]
     Indication: NON-SMALL CELL LUNG CANCER
     Dosage: PERMANENTLY DISCONTINUED.
     Route: 048
     Dates: start: 20091208, end: 20100217
  3. APROVEL [Concomitant]
     Dates: start: 20100120, end: 20100203
  4. APROVEL [Concomitant]
     Dates: start: 20100204

REACTIONS (2)
  - HYPERTENSION [None]
  - HYPERTENSIVE ENCEPHALOPATHY [None]
